FAERS Safety Report 5984223-6 (Version None)
Quarter: 2008Q4

REPORT INFORMATION
  Report Type: 
  Country: None (occurrence: None)
  Receive Date: 20081208
  Receipt Date: 20081126
  Transmission Date: 20090506
  Serious: Yes (Hospitalization, Other)
  Sender: FDA-Public Use
  Company Number: BR-ROCHE-597417

PATIENT
  Sex: Male
  Weight: 85 kg

DRUGS (3)
  1. PEGASYS [Suspect]
     Indication: HEPATITIS C
     Route: 058
     Dates: start: 20080402, end: 20081008
  2. PEGASYS [Suspect]
     Dosage: RECEIVED 2/3 RD DOSE
     Route: 058
     Dates: start: 20081103
  3. RIBAVIRIN [Concomitant]
     Indication: ANTIRETROVIRAL THERAPY
     Route: 048
     Dates: start: 20080402, end: 20081028

REACTIONS (5)
  - BLOOD BILIRUBIN INCREASED [None]
  - HEPATIC NEOPLASM [None]
  - OEDEMA [None]
  - PERITONITIS BACTERIAL [None]
  - RENAL FAILURE [None]
